FAERS Safety Report 6842307-4 (Version None)
Quarter: 2010Q3

REPORT INFORMATION
  Report Type: 
  Country: None (occurrence: None)
  Receive Date: 20100709
  Receipt Date: 20100628
  Transmission Date: 20110219
  Serious: Yes (Hospitalization)
  Sender: FDA-Public Use
  Company Number: 014103

PATIENT
  Sex: Female

DRUGS (14)
  1. CERTOLIZUMAB PEGOL (CERTOLIZUMAB PEGOL) [Suspect]
     Indication: RHEUMATOID ARTHRITIS
     Dosage: SUBCUTANEOUS (SUBCUTANEOUS)
     Route: 058
     Dates: start: 20100426, end: 20100604
  2. CERTOLIZUMAB PEGOL (CERTOLIZUMAB PEGOL) [Suspect]
     Indication: RHEUMATOID ARTHRITIS
     Dosage: SUBCUTANEOUS (SUBCUTANEOUS)
     Route: 058
     Dates: start: 20100329
  3. CERTOLIZUMAB PEGOL (CERTOLIZUMAB PEGOL) [Suspect]
     Indication: RHEUMATOID ARTHRITIS
     Dosage: SUBCUTANEOUS (SUBCUTANEOUS)
     Route: 058
     Dates: start: 20100412
  4. METHOTREXATE [Concomitant]
  5. PREDNISOLONE [Concomitant]
  6. PANTOZOL [Concomitant]
  7. SALAGEN [Concomitant]
  8. FOLSAN [Concomitant]
  9. IDEOS [Concomitant]
  10. TOREM [Concomitant]
  11. RAMIPRIL [Concomitant]
  12. BAYMYCARD [Concomitant]
  13. NEBIVOLOL [Concomitant]
  14. VIDISIC [Concomitant]

REACTIONS (16)
  - ASPARTATE AMINOTRANSFERASE INCREASED [None]
  - BLOOD GLUCOSE INCREASED [None]
  - DILATATION VENTRICULAR [None]
  - DRY EYE [None]
  - GLYCOSYLATED HAEMOGLOBIN INCREASED [None]
  - HELICOBACTER GASTRITIS [None]
  - MICROCYTIC ANAEMIA [None]
  - OSTEOPOROSIS [None]
  - PAIN IN EXTREMITY [None]
  - PLATELET COUNT INCREASED [None]
  - RHEUMATOID ARTHRITIS [None]
  - SICCA SYNDROME [None]
  - SINUS TACHYCARDIA [None]
  - URINARY TRACT INFECTION [None]
  - UTERINE CANCER [None]
  - WHITE BLOOD CELL COUNT INCREASED [None]
